FAERS Safety Report 14876344 (Version 2)
Quarter: 2018Q4

REPORT INFORMATION
  Report Type: Spontaneous
  Country: US (occurrence: US)
  Receive Date: 20180510
  Receipt Date: 20181127
  Transmission Date: 20190204
  Serious: Yes (Other)
  Sender: FDA-Public Use
  Company Number: US-ASTRAZENECA-2018SE59129

PATIENT
  Age: 22635 Day
  Sex: Male
  Weight: 99.3 kg

DRUGS (7)
  1. PEPTO-BISMOL [Concomitant]
     Active Substance: BISMUTH SUBSALICYLATE
  2. TUMS [Concomitant]
     Active Substance: CALCIUM CARBONATE
  3. NEXIUM 24HR [Suspect]
     Active Substance: ESOMEPRAZOLE MAGNESIUM
     Indication: GASTROOESOPHAGEAL REFLUX DISEASE
     Route: 048
     Dates: start: 201401, end: 201712
  4. PRILOSEC OTC [Suspect]
     Active Substance: OMEPRAZOLE MAGNESIUM
     Indication: GASTROOESOPHAGEAL REFLUX DISEASE
     Route: 048
     Dates: start: 201401, end: 201712
  5. PREVACID 24 HR [Suspect]
     Active Substance: LANSOPRAZOLE
     Indication: GASTROOESOPHAGEAL REFLUX DISEASE
     Route: 065
     Dates: start: 2014, end: 2017
  6. ZANTAC [Concomitant]
     Active Substance: RANITIDINE HYDROCHLORIDE
  7. PEPCID [Concomitant]
     Active Substance: FAMOTIDINE

REACTIONS (1)
  - Chronic kidney disease [Not Recovered/Not Resolved]

NARRATIVE: CASE EVENT DATE: 20160501
